FAERS Safety Report 15940967 (Version 4)
Quarter: 2020Q1

REPORT INFORMATION
  Report Type: Spontaneous
  Country: US (occurrence: US)
  Receive Date: 20190208
  Receipt Date: 20200311
  Transmission Date: 20200409
  Serious: Yes (Other)
  Sender: FDA-Public Use
  Company Number: US-ASTRAZENECA-2018SF66004

PATIENT
  Age: 22309 Day
  Sex: Female

DRUGS (29)
  1. NEXIUM [Suspect]
     Active Substance: ESOMEPRAZOLE MAGNESIUM
     Indication: DYSPEPSIA
     Route: 048
     Dates: start: 20130101
  2. METFORMIN [Concomitant]
     Active Substance: METFORMIN HYDROCHLORIDE
     Route: 065
     Dates: start: 20121220
  3. SIMVASTATIN. [Concomitant]
     Active Substance: SIMVASTATIN
     Route: 065
     Dates: start: 20121227
  4. POTASSIUM CHLORIDE. [Concomitant]
     Active Substance: POTASSIUM CHLORIDE
     Route: 065
     Dates: start: 20121229
  5. ZOLPIDEM [Concomitant]
     Active Substance: ZOLPIDEM TARTRATE
     Route: 065
     Dates: start: 20130110
  6. LANOXIN [Concomitant]
     Active Substance: DIGOXIN
     Route: 065
     Dates: start: 20130110
  7. TUMS [Concomitant]
     Active Substance: CALCIUM CARBONATE
  8. FUROSEMIDE. [Concomitant]
     Active Substance: FUROSEMIDE
     Route: 065
     Dates: start: 20130108
  9. NEXIUM [Suspect]
     Active Substance: ESOMEPRAZOLE MAGNESIUM
     Indication: DYSPEPSIA
     Dosage: FOR MULTIPLE AND VARIOUS YEARS
     Route: 048
  10. NEXIUM [Suspect]
     Active Substance: ESOMEPRAZOLE MAGNESIUM
     Indication: GASTROOESOPHAGEAL REFLUX DISEASE
     Dosage: FOR MULTIPLE AND VARIOUS YEARS
     Route: 048
  11. NEXIUM [Suspect]
     Active Substance: ESOMEPRAZOLE MAGNESIUM
     Indication: DYSPEPSIA
     Route: 048
     Dates: start: 2011
  12. NEXIUM [Suspect]
     Active Substance: ESOMEPRAZOLE MAGNESIUM
     Indication: DYSPEPSIA
     Route: 048
     Dates: start: 201201, end: 201904
  13. NEXIUM [Suspect]
     Active Substance: ESOMEPRAZOLE MAGNESIUM
     Indication: GASTROOESOPHAGEAL REFLUX DISEASE
     Route: 048
     Dates: start: 201201, end: 201904
  14. ESTRADIOL. [Concomitant]
     Active Substance: ESTRADIOL
     Route: 065
     Dates: start: 20121213
  15. PROMETHAZINE [Concomitant]
     Active Substance: PROMETHAZINE HYDROCHLORIDE
     Route: 065
     Dates: start: 20121218
  16. ONGLYZA [Concomitant]
     Active Substance: SAXAGLIPTIN HYDROCHLORIDE
     Route: 065
     Dates: start: 20130108
  17. PEPCID AC [Concomitant]
     Active Substance: FAMOTIDINE
  18. METOPROLOL. [Concomitant]
     Active Substance: METOPROLOL
     Route: 065
     Dates: start: 20130104
  19. LANTUS SOLOSTAR [Concomitant]
     Active Substance: INSULIN GLARGINE
     Route: 065
     Dates: start: 20130110
  20. NEXIUM [Suspect]
     Active Substance: ESOMEPRAZOLE MAGNESIUM
     Indication: DYSPEPSIA
     Route: 048
     Dates: start: 2009
  21. NEXIUM [Suspect]
     Active Substance: ESOMEPRAZOLE MAGNESIUM
     Indication: GASTROOESOPHAGEAL REFLUX DISEASE
     Route: 048
     Dates: start: 20130101
  22. MYLANTA [Concomitant]
     Active Substance: ALUMINUM HYDROXIDE\DIMETHICONE\MAGNESIUM HYDROXIDE
  23. NEXIUM [Suspect]
     Active Substance: ESOMEPRAZOLE MAGNESIUM
     Indication: DYSPEPSIA
     Route: 048
     Dates: start: 2019
  24. GLYBURIDE. [Concomitant]
     Active Substance: GLYBURIDE
     Route: 065
     Dates: start: 20121222
  25. CAPTOPRIL. [Concomitant]
     Active Substance: CAPTOPRIL
     Route: 065
     Dates: start: 20130110
  26. NEXIUM [Suspect]
     Active Substance: ESOMEPRAZOLE MAGNESIUM
     Indication: GASTROOESOPHAGEAL REFLUX DISEASE
     Route: 048
     Dates: start: 2011
  27. NEXIUM [Suspect]
     Active Substance: ESOMEPRAZOLE MAGNESIUM
     Indication: GASTROOESOPHAGEAL REFLUX DISEASE
     Route: 048
     Dates: start: 2009
  28. NEXIUM [Suspect]
     Active Substance: ESOMEPRAZOLE MAGNESIUM
     Indication: GASTROOESOPHAGEAL REFLUX DISEASE
     Route: 048
     Dates: start: 2019
  29. MAALOX ANTACID [Concomitant]
     Active Substance: ALUMINUM HYDROXIDE\DIMETHICONE\MAGNESIUM HYDROXIDE

REACTIONS (4)
  - Rebound acid hypersecretion [Unknown]
  - Acute kidney injury [Unknown]
  - Chronic kidney disease [Not Recovered/Not Resolved]
  - Renal failure [Unknown]

NARRATIVE: CASE EVENT DATE: 20140213
